FAERS Safety Report 16387035 (Version 1)
Quarter: 2019Q2

REPORT INFORMATION
  Report Type: Spontaneous
  Country: CN (occurrence: CN)
  Receive Date: 20190604
  Receipt Date: 20190604
  Transmission Date: 20190711
  Serious: Yes (Death)
  Sender: FDA-Public Use
  Company Number: CN-ORPHAN EUROPE-2067748

PATIENT
  Sex: Female

DRUGS (5)
  1. HYDROXOCOBALAMIN [Concomitant]
     Active Substance: HYDROXOCOBALAMIN
  2. CARNITINE [Concomitant]
     Active Substance: CARNITINE
  3. CYSTADANE [Suspect]
     Active Substance: BETAINE
     Indication: HOMOCYSTINURIA
  4. ARGININE [Concomitant]
     Active Substance: ARGININE
  5. FOLATE [Concomitant]
     Active Substance: FOLATE SODIUM

REACTIONS (1)
  - Death [Fatal]
